FAERS Safety Report 14975222 (Version 4)
Quarter: 2018Q2

REPORT INFORMATION
  Report Type: Spontaneous
  Country: AU (occurrence: AU)
  Receive Date: 20180605
  Receipt Date: 20180621
  Transmission Date: 20180711
  Serious: Yes (Other)
  Sender: FDA-Public Use
  Company Number: AU-PFIZER INC-2018220714

PATIENT
  Age: 37 Year
  Sex: Male

DRUGS (7)
  1. CLOPINE [Suspect]
     Active Substance: CLOZAPINE
     Dosage: UNK
     Dates: start: 20140709
  2. CLONAZEPAM. [Concomitant]
     Active Substance: CLONAZEPAM
     Dosage: 2 MG, DAILY (HALF TABLET BD)
  3. GEMFIBROZIL. [Concomitant]
     Active Substance: GEMFIBROZIL
     Dosage: 600 MG, 2X/DAY
  4. DIAZEPAM. [Concomitant]
     Active Substance: DIAZEPAM
     Dosage: 5 MG, 1X/DAY (MANE)
  5. VENLAFAXINE HCL [Suspect]
     Active Substance: VENLAFAXINE HYDROCHLORIDE
     Dosage: 375 MG, DAILY (150 MG TWO TABLETS MANE AND 75 MG TABLET MANE - TOTAL DOSE 375 MG)
  6. PROPRANOLOL [Concomitant]
     Active Substance: PROPRANOLOL HYDROCHLORIDE
     Dosage: 40 MG, 2X/DAY
  7. CLOPINE [Suspect]
     Active Substance: CLOZAPINE
     Dosage: 400 MG, UNK (100 MG BD AND 200 MG NOCTE)

REACTIONS (17)
  - Blood glucose increased [Unknown]
  - Blood triglycerides increased [Unknown]
  - Drug level increased [Unknown]
  - Blood alkaline phosphatase increased [Unknown]
  - Blood bicarbonate decreased [Unknown]
  - Mean platelet volume increased [Unknown]
  - Electrocardiogram QT prolonged [Unknown]
  - Left ventricular dysfunction [Unknown]
  - Hallucination, auditory [Unknown]
  - Blood thyroid stimulating hormone increased [Unknown]
  - High density lipoprotein decreased [Unknown]
  - Blood 25-hydroxycholecalciferol decreased [Unknown]
  - Diastolic dysfunction [Unknown]
  - Cardiomyopathy [Unknown]
  - Cardiac disorder [Unknown]
  - Lymphocyte count increased [Unknown]
  - Disease recurrence [Unknown]

NARRATIVE: CASE EVENT DATE: 20171206
